FAERS Safety Report 12831940 (Version 1)
Quarter: 2016Q4

REPORT INFORMATION
  Report Type: Spontaneous
  Country: US (occurrence: US)
  Receive Date: 20161010
  Receipt Date: 20161010
  Transmission Date: 20170207
  Serious: Yes (Hospitalization)
  Sender: FDA-Public Use
  Company Number: US-INDOCO-000014

PATIENT
  Age: 6 Year
  Sex: Female

DRUGS (11)
  1. GLIMEPIRIDE. [Suspect]
     Active Substance: GLIMEPIRIDE
     Indication: PRODUCT USED FOR UNKNOWN INDICATION
     Dosage: UP TO 2 MG 4 TIMES DAILY
  2. ESOMEPRAZOLE/ESOMEPRAZOLE MAGNESIUM/ESOMEPRAZOLE SODIUM [Concomitant]
  3. CETIRIZINE [Concomitant]
     Active Substance: CETIRIZINE HYDROCHLORIDE
  4. MACROGOL [Concomitant]
     Active Substance: POLYETHYLENE GLYCOLS
     Dosage: VIA GASTROSTOMY TUBE
  5. ALBUTEROL. [Concomitant]
     Active Substance: ALBUTEROL
  6. IPRATROPIUM [Concomitant]
     Active Substance: IPRATROPIUM
  7. GLYCOPYRRONIUM [Concomitant]
     Active Substance: GLYCOPYRRONIUM
  8. LEVETIRACETAM. [Concomitant]
     Active Substance: LEVETIRACETAM
  9. FLUTICASONE [Concomitant]
     Active Substance: FLUTICASONE\FLUTICASONE PROPIONATE
  10. FELBAMATE. [Concomitant]
     Active Substance: FELBAMATE
  11. CLOBAZAM [Concomitant]
     Active Substance: CLOBAZAM

REACTIONS (3)
  - Toxicity to various agents [Unknown]
  - Medication error [Unknown]
  - Hypoglycaemia [Unknown]
